FAERS Safety Report 20147571 (Version 1)
Quarter: 2021Q4

REPORT INFORMATION
  Report Type: Spontaneous
  Country: US (occurrence: US)
  Receive Date: 20211203
  Receipt Date: 20211203
  Transmission Date: 20220303
  Serious: No
  Sender: FDA-Public Use
  Company Number: US-SA-SAC20211129001452

PATIENT
  Age: 78 Year
  Sex: Female

DRUGS (10)
  1. DUPIXENT [Suspect]
     Active Substance: DUPILUMAB
     Indication: Dermatitis atopic
     Dosage: 300 MG, QOW
     Route: 058
     Dates: start: 20211019
  2. ALPRAZOLAM [Concomitant]
     Active Substance: ALPRAZOLAM
  3. ATORVASTATIN [Concomitant]
     Active Substance: ATORVASTATIN
  4. CEFADROXIL [Concomitant]
     Active Substance: CEFADROXIL
  5. CLONIDINE [Concomitant]
     Active Substance: CLONIDINE
  6. DILTIAZEM [Concomitant]
     Active Substance: DILTIAZEM
  7. PREGABALIN [Concomitant]
     Active Substance: PREGABALIN
  8. TIZANIDINE [Concomitant]
     Active Substance: TIZANIDINE
  9. TRAZODONE [Concomitant]
     Active Substance: TRAZODONE HYDROCHLORIDE
  10. HYDROCHLOROTHIAZIDE [Concomitant]
     Active Substance: HYDROCHLOROTHIAZIDE

REACTIONS (2)
  - Nerve compression [Not Recovered/Not Resolved]
  - Mastectomy [Recovering/Resolving]

NARRATIVE: CASE EVENT DATE: 20211104
